FAERS Safety Report 24220345 (Version 1)
Quarter: 2024Q3

REPORT INFORMATION
  Report Type: Spontaneous
  Country: GB (occurrence: GB)
  Receive Date: 20240818
  Receipt Date: 20240818
  Transmission Date: 20241016
  Serious: Yes (Other)
  Sender: DEXCEL
  Company Number: None

PATIENT
  Age: 73 Year
  Sex: Female
  Weight: 50 kg

DRUGS (2)
  1. OMEPRAZOLE [Suspect]
     Active Substance: OMEPRAZOLE
     Indication: Dyspepsia
     Dosage: 20MG ONCE DAILY AM
     Dates: end: 2021
  2. ASPIRIN [Suspect]
     Active Substance: ASPIRIN
     Indication: Cerebrovascular accident
     Dosage: 75MG ONCE DAILY
     Dates: start: 1994, end: 2021

REACTIONS (6)
  - Colitis microscopic [Not Recovered/Not Resolved]
  - Osteoporosis [Unknown]
  - Palpitations [Unknown]
  - Blood pressure increased [Unknown]
  - Abdominal pain [Unknown]
  - Diarrhoea [Unknown]
